FAERS Safety Report 7028255-8 (Version None)
Quarter: 2010Q4

REPORT INFORMATION
  Report Type: 
  Country: None (occurrence: None)
  Receive Date: 20101005
  Receipt Date: 20100926
  Transmission Date: 20110411
  Serious: Yes (Hospitalization, Other)
  Sender: FDA-Public Use
  Company Number: US-PFIZER INC-2010107520

PATIENT
  Sex: Female
  Weight: 67.12 kg

DRUGS (26)
  1. CHANTIX [Suspect]
     Indication: SMOKING CESSATION THERAPY
     Dosage: 0.5 MG, 1X/DAY
     Route: 048
     Dates: start: 20080801
  2. CHANTIX [Suspect]
     Dosage: UNK
     Route: 048
     Dates: start: 20100101
  3. TYLENOL [Concomitant]
     Indication: PAIN
     Dosage: 1000 MG, 4X/DAY, (500 MG TWO TABLETS)
     Route: 048
  4. GABAPENTIN [Concomitant]
     Indication: FIBROMYALGIA
     Dosage: 900 MG, 2X/DAY, (300 MG 3 CAPSULES)
     Route: 048
  5. ADVAIR DISKUS 100/50 [Concomitant]
     Dosage: UNK
  6. FLUTICASONE [Concomitant]
     Dosage: UNK
  7. SPIRIVA [Concomitant]
     Dosage: UNK
  8. ALPRAZOLAM [Concomitant]
     Dosage: UNK
  9. PROAIR HFA [Concomitant]
     Dosage: UNK
  10. PROZAC [Concomitant]
     Dosage: UNK
  11. PERCOCET [Concomitant]
     Indication: PAIN
     Dosage: UNK
  12. URSODIOL [Concomitant]
     Dosage: UNK
  13. PROTONIX [Concomitant]
     Dosage: UNK
  14. DILTIAZEM [Concomitant]
     Dosage: UNK
  15. SUDAFED 12 HOUR [Concomitant]
     Dosage: UNK, AS NEEDED
  16. TRAZODONE [Concomitant]
     Dosage: UNK
  17. LASIX [Concomitant]
     Dosage: UNK
  18. MIRALAX [Concomitant]
     Dosage: UNK
  19. NASONEX [Concomitant]
     Dosage: UNK
  20. GUAIFENESIN DM [Concomitant]
     Indication: SINUSITIS
     Dosage: UNK
  21. CHLORPHENIRAMINE MALEATE [Concomitant]
     Indication: SINUSITIS
     Dosage: UNK
  22. OXYBUTYNIN [Concomitant]
     Indication: HYPERTONIC BLADDER
     Dosage: UNK
  23. LOVAZA [Concomitant]
     Dosage: 1200 MG, 2X/DAY
  24. VITAMIN D3 [Concomitant]
     Dosage: 2000 IU, UNK
  25. CARISOPRODOL [Concomitant]
     Dosage: UNK
  26. FOSAMAX [Concomitant]
     Indication: OSTEOPENIA
     Dosage: UNK

REACTIONS (3)
  - CATARACT [None]
  - CONFUSIONAL STATE [None]
  - PNEUMONIA BACTERIAL [None]
